FAERS Safety Report 13914746 (Version 3)
Quarter: 2017Q3

REPORT INFORMATION
  Report Type: Spontaneous
  Country: JP (occurrence: JP)
  Receive Date: 20170828
  Receipt Date: 20170918
  Transmission Date: 20171127
  Serious: Yes (Death, Other)
  Sender: FDA-Public Use
  Company Number: JP-ROCHE-1983141

PATIENT
  Age: 65 Year
  Sex: Female

DRUGS (2)
  1. AVASTIN [Suspect]
     Active Substance: BEVACIZUMAB
     Indication: BREAST CANCER
     Route: 041
     Dates: start: 201505, end: 201507
  2. PACLITAXEL. [Concomitant]
     Active Substance: PACLITAXEL
     Indication: BREAST CANCER
     Dosage: DOSAGE IS UNCERTAIN.
     Route: 041

REACTIONS (6)
  - Intestinal obstruction [Recovered/Resolved]
  - Small intestinal perforation [Unknown]
  - Respiratory failure [Fatal]
  - Small intestine carcinoma [Unknown]
  - Hydronephrosis [Recovered/Resolved]
  - Suture rupture [Fatal]

NARRATIVE: CASE EVENT DATE: 201507
